FAERS Safety Report 8193447-1 (Version None)
Quarter: 2012Q1

REPORT INFORMATION
  Report Type: 
  Country: None (occurrence: None)
  Receive Date: 20120308
  Receipt Date: 20120301
  Transmission Date: 20120608
  Serious: Yes (Hospitalization)
  Sender: FDA-Public Use
  Company Number: IT-TEVA-326248ISR

PATIENT
  Sex: Male

DRUGS (2)
  1. TEICOPLANINA [Concomitant]
     Indication: PNEUMONIA ASPIRATION
     Dates: start: 20120210, end: 20120215
  2. AMIKACIN [Suspect]
     Indication: PNEUMONIA ASPIRATION
     Dosage: 1500 MILLIGRAM;
     Route: 042
     Dates: start: 20120210, end: 20120215

REACTIONS (1)
  - PANCYTOPENIA [None]
